FAERS Safety Report 9744912 (Version 1)
Quarter: 2013Q4

REPORT INFORMATION
  Report Type: Report from Study
  Country: NL (occurrence: NL)
  Receive Date: 20131211
  Receipt Date: 20131211
  Transmission Date: 20140711
  Serious: Yes (Death, Life-Threatening)
  Sender: FDA-Public Use
  Company Number: NL-ROCHE-1311397

PATIENT
  Age: 54 Year
  Sex: Female

DRUGS (5)
  1. BEVACIZUMAB [Suspect]
     Indication: BREAST CANCER RECURRENT
     Dosage: ON 06/NOV/2013, LAST DOSE OF ADMINISTERED.
     Route: 042
     Dates: start: 20130411
  2. PACLITAXEL [Suspect]
     Indication: BREAST CANCER RECURRENT
     Dosage: ON 24/JUL/2013, THE LAST DOSE WAS ADMINISTERED
     Route: 042
     Dates: start: 20130411
  3. ZOMETA [Concomitant]
     Route: 065
     Dates: start: 20130424
  4. AMLODIPINE [Concomitant]
     Route: 065
     Dates: start: 20130528
  5. PANTOZOL (SWITZERLAND) [Concomitant]
     Route: 065
     Dates: start: 20130111

REACTIONS (1)
  - Jaundice [Fatal]
